FAERS Safety Report 9593278 (Version 1)
Quarter: 2013Q4

REPORT INFORMATION
  Report Type: Spontaneous
  Country: US (occurrence: US)
  Receive Date: 20131004
  Receipt Date: 20131004
  Transmission Date: 20140711
  Serious: Yes (Life-Threatening, Hospitalization, Disabling)
  Sender: FDA-Public Use
  Company Number: US-BAYER-2013-116723

PATIENT
  Age: 38 Year
  Sex: Female

DRUGS (1)
  1. MIRENA [Suspect]
     Dosage: 20 MCG/24HR, CONT
     Route: 015
     Dates: start: 20100629, end: 20110924

REACTIONS (14)
  - Large intestine perforation [None]
  - Oophoritis [None]
  - Salpingitis [None]
  - Anxiety [None]
  - Ovarian abscess [None]
  - Abdominal pain [None]
  - Abdominal pain lower [None]
  - Abdominal discomfort [None]
  - Injury [None]
  - General physical health deterioration [None]
  - Anhedonia [None]
  - Deformity [None]
  - Balance disorder [None]
  - Balance disorder [None]
